FAERS Safety Report 24746432 (Version 3)
Quarter: 2025Q1

REPORT INFORMATION
  Report Type: Spontaneous
  Country: TR (occurrence: TR)
  Receive Date: 20241218
  Receipt Date: 20250212
  Transmission Date: 20250408
  Serious: Yes (Hospitalization, Disabling)
  Sender: Y-MABS THERAPEUTICS
  Company Number: TR-Y-MABS THERAPEUTICS, INC.-EAP2024-TR-001864

PATIENT

DRUGS (3)
  1. DANYELZA [Suspect]
     Active Substance: NAXITAMAB-GQGK
     Indication: Neuroblastoma recurrent
     Route: 042
     Dates: start: 20241119, end: 20241119
  2. GENKORT [Concomitant]
  3. FLUDROCORTISONE [Concomitant]
     Active Substance: FLUDROCORTISONE

REACTIONS (4)
  - Vision blurred [Recovered/Resolved]
  - Mydriasis [Not Recovered/Not Resolved]
  - Refraction disorder [Recovered/Resolved]
  - Skin burning sensation [Recovering/Resolving]

NARRATIVE: CASE EVENT DATE: 20241125
